FAERS Safety Report 14091623 (Version 2)
Quarter: 2017Q4

REPORT INFORMATION
  Report Type: Spontaneous
  Country: SA (occurrence: SA)
  Receive Date: 20171016
  Receipt Date: 20171025
  Transmission Date: 20180321
  Serious: Yes (Hospitalization)
  Sender: FDA-Public Use
  Company Number: SA-ASTRAZENECA-2017SF04667

PATIENT
  Age: 38 Year
  Sex: Female
  Weight: 87 kg

DRUGS (4)
  1. GLIMEPIRIDE. [Concomitant]
     Active Substance: GLIMEPIRIDE
  2. INSULIN [Concomitant]
     Active Substance: INSULIN NOS
  3. FORXIGA [Suspect]
     Active Substance: DAPAGLIFLOZIN
     Indication: DIABETES MELLITUS
     Route: 048
     Dates: start: 20170301, end: 20170901
  4. JANUMET [Concomitant]
     Active Substance: METFORMIN HYDROCHLORIDE\SITAGLIPTIN PHOSPHATE

REACTIONS (2)
  - Urinary retention [Recovered/Resolved]
  - Bladder hypertrophy [Recovered/Resolved]

NARRATIVE: CASE EVENT DATE: 20170901
